FAERS Safety Report 6009957-9 (Version None)
Quarter: 2008Q4

REPORT INFORMATION
  Report Type: 
  Country: None (occurrence: None)
  Receive Date: 20081218
  Receipt Date: 20081211
  Transmission Date: 20090506
  Serious: No
  Sender: FDA-Public Use
  Company Number: FR-JNJFOC-20081203275

PATIENT
  Sex: Female

DRUGS (1)
  1. DURAGESIC-100 [Suspect]
     Indication: PAIN
     Dosage: HALF PATCH (MISUSE)

REACTIONS (1)
  - WRONG TECHNIQUE IN DRUG USAGE PROCESS [None]
